FAERS Safety Report 20686374 (Version 1)
Quarter: 2022Q2

REPORT INFORMATION
  Report Type: Spontaneous
  Country: US (occurrence: US)
  Receive Date: 20220407
  Receipt Date: 20220407
  Transmission Date: 20220721
  Serious: No
  Sender: FDA-Public Use
  Company Number: US-PFIZER INC-202100940899

PATIENT
  Age: 44 Year
  Sex: Female
  Weight: 99.79 kg

DRUGS (1)
  1. CHANTIX [Suspect]
     Active Substance: VARENICLINE TARTRATE
     Indication: Smoking cessation therapy
     Dosage: 2 MG, DAILY (1MG TABLET ONE TABLET IN THE MORNING AND ONE TABLET IN THE EVENING)

REACTIONS (4)
  - Illness [Unknown]
  - Nausea [Not Recovered/Not Resolved]
  - Insomnia [Not Recovered/Not Resolved]
  - Recalled product administered [Unknown]
